FAERS Safety Report 4454607-6 (Version None)
Quarter: 2004Q3

REPORT INFORMATION
  Report Type: 
  Country: None (occurrence: None)
  Receive Date: 20040921
  Receipt Date: 20040921
  Transmission Date: 20050211
  Serious: No
  Sender: FDA-Public Use
  Company Number: None

PATIENT
  Sex: Male
  Weight: 68 kg

DRUGS (4)
  1. ATORVASTATIN CALCIUM [Suspect]
     Indication: HYPERLIPIDAEMIA
     Dosage: 80 MG PO QD
     Route: 048
     Dates: start: 20040519
  2. ASPIRIN [Concomitant]
  3. FOSINOPRIL SODIUM [Concomitant]
  4. ATENOLOL [Concomitant]

REACTIONS (1)
  - LIVER FUNCTION TEST ABNORMAL [None]
